FAERS Safety Report 11184815 (Version 1)
Quarter: 2015Q2

REPORT INFORMATION
  Report Type: Spontaneous
  Country: BR (occurrence: BR)
  Receive Date: 20150612
  Receipt Date: 20150612
  Transmission Date: 20150821
  Serious: Yes (Hospitalization)
  Sender: FDA-Public Use
  Company Number: ALCN2015BR003449

PATIENT
  Age: 38 Week
  Sex: Female

DRUGS (2)
  1. MYDRIACYL [Suspect]
     Active Substance: TROPICAMIDE
     Indication: PUPIL DILATION PROCEDURE
     Dosage: 1 GTT, TID
     Route: 047
     Dates: start: 20150504, end: 20150504
  2. MYDRIACYL [Suspect]
     Active Substance: TROPICAMIDE
     Dosage: 1 GTT, TID
     Route: 047
     Dates: start: 20150505, end: 20150505

REACTIONS (2)
  - Drug hypersensitivity [Recovered/Resolved]
  - Erythema [Recovered/Resolved]

NARRATIVE: CASE EVENT DATE: 20150525
